FAERS Safety Report 18389054 (Version 2)
Quarter: 2020Q4

REPORT INFORMATION
  Report Type: Spontaneous
  Country: CH (occurrence: CH)
  Receive Date: 20201016
  Receipt Date: 20201113
  Transmission Date: 20210114
  Serious: Yes (Other)
  Sender: FDA-Public Use
  Company Number: CH-ABBVIE-20K-151-3604774-00

PATIENT
  Sex: Female
  Weight: 80 kg

DRUGS (7)
  1. HUMIRA [Suspect]
     Active Substance: ADALIMUMAB
     Indication: AUTOINFLAMMATORY DISEASE
     Route: 058
     Dates: start: 201909, end: 202008
  2. PREDNISOLONE. [Concomitant]
     Active Substance: PREDNISOLONE
     Indication: PRODUCT USED FOR UNKNOWN INDICATION
     Dates: start: 20201030
  3. HUMIRA [Suspect]
     Active Substance: ADALIMUMAB
     Route: 058
     Dates: start: 202010, end: 20201024
  4. CICLOSPORIN [Suspect]
     Active Substance: CYCLOSPORINE
     Indication: AUTOINFLAMMATORY DISEASE
     Dosage: HIGH DOSE, TAPERED OFF
     Route: 065
     Dates: end: 2020
  5. KINERET [Concomitant]
     Active Substance: ANAKINRA
     Indication: PRODUCT USED FOR UNKNOWN INDICATION
     Dates: start: 20201010
  6. CORTICOSTEROID NOS [Suspect]
     Active Substance: CORTICOSTEROID NOS
     Indication: AUTOINFLAMMATORY DISEASE
     Dosage: TAPERED OFF
     Route: 065
     Dates: end: 2020
  7. HUMIRA [Suspect]
     Active Substance: ADALIMUMAB
     Route: 058
     Dates: start: 202008, end: 202010

REACTIONS (4)
  - Impaired quality of life [Unknown]
  - Off label use [Unknown]
  - Pyoderma gangrenosum [Unknown]
  - Ulcer [Not Recovered/Not Resolved]
